FAERS Safety Report 6371704-9 (Version None)
Quarter: 2009Q3

REPORT INFORMATION
  Report Type: 
  Country: None (occurrence: None)
  Receive Date: 20090923
  Receipt Date: 20080819
  Transmission Date: 20100115
  Serious: No
  Sender: FDA-Public Use
  Company Number: US-ASTRAZENECA-2008UW01452

PATIENT
  Age: 24 Year
  Sex: Female
  Weight: 63.5 kg

DRUGS (2)
  1. SEROQUEL [Suspect]
     Indication: BIPOLAR DISORDER
     Dosage: 300MG, 600MG, 900MG, 1200MG
     Route: 048
     Dates: start: 20000101, end: 20040101
  2. CLONAZEPAM [Concomitant]
     Dates: start: 20080501

REACTIONS (6)
  - BLOOD CHOLESTEROL INCREASED [None]
  - DIABETES MELLITUS [None]
  - GESTATIONAL DIABETES [None]
  - MENTAL DISORDER [None]
  - OVERWEIGHT [None]
  - SYNCOPE [None]
